FAERS Safety Report 24572590 (Version 1)
Quarter: 2024Q4

REPORT INFORMATION
  Report Type: Spontaneous
  Country: US (occurrence: US)
  Receive Date: 20241101
  Receipt Date: 20241101
  Transmission Date: 20250115
  Serious: Yes (Other)
  Sender: DR REDDYS
  Company Number: US-DRL-USA-LIT/USA/24/0015993

PATIENT
  Age: 60 Year
  Sex: Female

DRUGS (3)
  1. LEVETIRACETAM [Suspect]
     Active Substance: LEVETIRACETAM
     Indication: Focal dyscognitive seizures
  2. VALPROATE [Suspect]
     Active Substance: VALPROIC ACID
     Indication: Focal dyscognitive seizures
  3. LACOSAMIDE [Suspect]
     Active Substance: LACOSAMIDE
     Indication: Focal dyscognitive seizures

REACTIONS (1)
  - Drug ineffective [Unknown]
